FAERS Safety Report 16975305 (Version 2)
Quarter: 2020Q2

REPORT INFORMATION
  Report Type: Spontaneous
  Country: IT (occurrence: IT)
  Receive Date: 20191030
  Receipt Date: 20200424
  Transmission Date: 20200713
  Serious: Yes (Life-Threatening)
  Sender: FDA-Public Use
  Company Number: IT-PFIZER INC-2019468753

PATIENT
  Age: 44 Year
  Sex: Female
  Weight: 51 kg

DRUGS (2)
  1. INDERAL [Suspect]
     Active Substance: PROPRANOLOL HYDROCHLORIDE
     Indication: HYPERTENSION
     Dosage: 120 MG, 1X/DAY
     Route: 048
  2. DIFLUCAN [Suspect]
     Active Substance: FLUCONAZOLE
     Indication: VULVOVAGINAL CANDIDIASIS
     Dosage: 200 MG, 1X/DAY
     Route: 048
     Dates: start: 20190928, end: 20190930

REACTIONS (3)
  - Syncope [Recovering/Resolving]
  - Arrhythmia [Recovering/Resolving]
  - Dyspnoea [Recovering/Resolving]

NARRATIVE: CASE EVENT DATE: 20190930
